FAERS Safety Report 6274331-7 (Version None)
Quarter: 2009Q3

REPORT INFORMATION
  Report Type: 
  Country: None (occurrence: None)
  Receive Date: 20090720
  Receipt Date: 20090708
  Transmission Date: 20100115
  Serious: Yes (Other)
  Sender: FDA-Public Use
  Company Number: US-WYE-H10084409

PATIENT
  Sex: Female
  Weight: 59.02 kg

DRUGS (3)
  1. PRISTIQ [Suspect]
     Indication: DEPRESSION
     Route: 048
     Dates: start: 20090701
  2. PRISTIQ [Suspect]
     Indication: ANXIETY
  3. KLONOPIN [Concomitant]
     Indication: ANXIETY
     Dosage: 1 MG TWICE DAILY, 0.5 MG AS NEED

REACTIONS (7)
  - APATHY [None]
  - CONDITION AGGRAVATED [None]
  - FLAT AFFECT [None]
  - HEADACHE [None]
  - HYPOTENSION [None]
  - IMPAIRED WORK ABILITY [None]
  - SOMNOLENCE [None]
